FAERS Safety Report 6694886-8 (Version None)
Quarter: 2010Q2

REPORT INFORMATION
  Report Type: 
  Country: None (occurrence: None)
  Receive Date: 20100423
  Receipt Date: 20100420
  Transmission Date: 20101027
  Serious: Yes (Death, Hospitalization)
  Sender: FDA-Public Use
  Company Number: GB-WYE-G05992310

PATIENT
  Sex: Male

DRUGS (3)
  1. GEMTUZUMAB OZOGAMICIN [Suspect]
     Indication: ACUTE MYELOID LEUKAEMIA
     Dosage: UNKNOWN
     Dates: start: 20100108, end: 20100117
  2. DAUNORUBICIN HCL [Concomitant]
     Dosage: UNKNOWN
     Dates: start: 20100108, end: 20100117
  3. ARA-C [Concomitant]
     Dosage: UNKNOWN
     Dates: start: 20100108, end: 20100117

REACTIONS (4)
  - BACTERIAL INFECTION [None]
  - C-REACTIVE PROTEIN INCREASED [None]
  - NEUTROPENIC SEPSIS [None]
  - PNEUMONIA [None]
